FAERS Safety Report 14303459 (Version 1)
Quarter: 2017Q4

REPORT INFORMATION
  Report Type: Spontaneous
  Country: CH (occurrence: CH)
  Receive Date: 20171219
  Receipt Date: 20171219
  Transmission Date: 20180321
  Serious: Yes (Hospitalization, Other)
  Sender: FDA-Public Use
  Company Number: CH-OTSUKA-DJ20082982

PATIENT

DRUGS (15)
  1. SEROQUEL [Suspect]
     Active Substance: QUETIAPINE FUMARATE
     Route: 048
     Dates: start: 20080709
  2. TEMESTA (LORAZEPAM) [Suspect]
     Active Substance: LORAZEPAM
     Route: 048
     Dates: start: 20080526, end: 20080602
  3. QUETIAPINE. [Suspect]
     Active Substance: QUETIAPINE
     Dosage: 50MG:28-30MAY08  75MG:31-3JUN08  100MG:04JUN-9JUL08  100MG:09JUL-17JUL08  10JUL:NORMAL PARAMETER
     Route: 048
     Dates: start: 20080709
  4. CYMBALTA [Suspect]
     Active Substance: DULOXETINE HYDROCHLORIDE
     Route: 048
     Dates: start: 200708, end: 20080602
  5. SEROQUEL [Suspect]
     Active Substance: QUETIAPINE FUMARATE
     Route: 048
     Dates: start: 20080531, end: 20080603
  6. CYMBALTA [Suspect]
     Active Substance: DULOXETINE HYDROCHLORIDE
     Dosage: ALSO TOOK 120MG FROM AUG2007-02JUN08;60MG FROM 03JUN08-17JUL08.
     Route: 048
     Dates: start: 200708, end: 20080717
  7. SEROQUEL [Suspect]
     Active Substance: QUETIAPINE FUMARATE
     Route: 048
     Dates: start: 20080528, end: 20080530
  8. DEROXAT [Suspect]
     Active Substance: PAROXETINE HYDROCHLORIDE
     Route: 048
     Dates: start: 200708, end: 20080606
  9. PAROXETINE. [Suspect]
     Active Substance: PAROXETINE
     Dosage: ALSO TOOK  30MG FROM AUG07-27MAY08  20MG FROM 28MAY08-02JUN08  10MG FROM 03JUN08-06JUN08
     Route: 048
     Dates: start: 200708, end: 20080606
  10. ABILIFY [Suspect]
     Active Substance: ARIPIPRAZOLE
     Indication: SCHIZOPHRENIA
     Route: 048
     Dates: start: 20080531, end: 20080602
  11. VOLTAREN [Concomitant]
     Active Substance: DICLOFENAC SODIUM
     Route: 065
     Dates: start: 20080529, end: 20080602
  12. LORAZEPAM. [Suspect]
     Active Substance: LORAZEPAM
     Dosage: ALSO TOOK  1MG FROM 03-09JUN08  0.5MG FROM 10-13JUN08.
     Route: 048
     Dates: start: 20080526, end: 20080602
  13. ABILIFY [Suspect]
     Active Substance: ARIPIPRAZOLE
     Indication: SCHIZOPHRENIA
     Route: 048
     Dates: start: 20080603
  14. CYMBALTA [Suspect]
     Active Substance: DULOXETINE HYDROCHLORIDE
     Route: 048
     Dates: start: 20080603, end: 20080717
  15. SEROQUEL [Suspect]
     Active Substance: QUETIAPINE FUMARATE
     Route: 048
     Dates: start: 20080604, end: 20080709

REACTIONS (1)
  - Pancreatitis [Recovered/Resolved]

NARRATIVE: CASE EVENT DATE: 20080604
